FAERS Safety Report 15738810 (Version 4)
Quarter: 2019Q2

REPORT INFORMATION
  Report Type: Report from Study
  Country: US (occurrence: US)
  Receive Date: 20181219
  Receipt Date: 20190619
  Transmission Date: 20190711
  Serious: Yes (Other)
  Sender: FDA-Public Use
  Company Number: US-ACTELION-A-CH2018-183463

PATIENT
  Age: 25 Year
  Sex: Female
  Weight: 62.59 kg

DRUGS (13)
  1. ADCIRCA [Suspect]
     Active Substance: TADALAFIL
     Indication: PULMONARY ARTERIAL HYPERTENSION
     Dosage: 40 MG, OD
     Route: 048
     Dates: start: 20170210
  2. LASIX [Concomitant]
     Active Substance: FUROSEMIDE
     Dosage: UNK
     Dates: start: 20170208
  3. MACITENTAN [Suspect]
     Active Substance: MACITENTAN
     Indication: PULMONARY ARTERIAL HYPERTENSION
     Dosage: 10 MG, OD
     Route: 048
     Dates: start: 20170203, end: 20181201
  4. TOPROL XL [Concomitant]
     Active Substance: METOPROLOL SUCCINATE
     Dosage: UNK
     Dates: start: 20170620
  5. K-DUR [Concomitant]
     Active Substance: POTASSIUM CHLORIDE
     Dosage: UNK
     Dates: start: 20170424
  6. WARFARIN [Concomitant]
     Active Substance: WARFARIN
     Dosage: UNK
     Dates: start: 20170126
  7. BLINDED SELEXIPAG [Suspect]
     Active Substance: SELEXIPAG
     Indication: PULMONARY ARTERIAL HYPERTENSION
     Dosage: 1600 ?G, BID
     Route: 048
     Dates: start: 20170410
  8. BLINDED SELEXIPAG [Suspect]
     Active Substance: SELEXIPAG
     Dosage: 200 ?G, BID
     Route: 048
     Dates: start: 20170220
  9. BLINDED PLACEBO [Suspect]
     Active Substance: INVESTIGATIONAL PRODUCT
     Indication: PULMONARY ARTERIAL HYPERTENSION
     Dosage: 1600 ?G, BID
     Route: 048
     Dates: start: 20170410
  10. ADCIRCA [Suspect]
     Active Substance: TADALAFIL
     Dosage: 20 MG, OD
     Route: 048
     Dates: start: 20170203
  11. TAPAZOLE [Concomitant]
     Active Substance: METHIMAZOLE
     Dosage: 2.5 MG, UNK
     Dates: start: 201704
  12. ZOFRAN [Concomitant]
     Active Substance: ONDANSETRON HYDROCHLORIDE
     Dosage: 4 MG, UNK
     Dates: start: 20180707
  13. BLINDED PLACEBO [Suspect]
     Active Substance: INVESTIGATIONAL PRODUCT
     Dosage: 200 ?G, BID
     Route: 048
     Dates: start: 20170220

REACTIONS (8)
  - Nausea [Not Recovered/Not Resolved]
  - Injury associated with device [Not Recovered/Not Resolved]
  - Malaise [Not Recovered/Not Resolved]
  - Alanine aminotransferase increased [Not Recovered/Not Resolved]
  - Hepatitis C [Not Recovered/Not Resolved]
  - Blood bilirubin increased [Not Recovered/Not Resolved]
  - Pyrexia [Not Recovered/Not Resolved]
  - Aspartate aminotransferase increased [Not Recovered/Not Resolved]

NARRATIVE: CASE EVENT DATE: 20180928
